FAERS Safety Report 5459489-1 (Version None)
Quarter: 2007Q3

REPORT INFORMATION
  Report Type: 
  Country: None (occurrence: None)
  Receive Date: 20070919
  Receipt Date: 20070910
  Transmission Date: 20080115
  Serious: Yes (Hospitalization)
  Sender: FDA-Public Use
  Company Number: A0682490A

PATIENT
  Sex: Male

DRUGS (1)
  1. ADVAIR DISKUS 100/50 [Suspect]
     Indication: DRUG USE FOR UNKNOWN INDICATION
     Route: 055
     Dates: start: 20070101

REACTIONS (7)
  - ANOREXIA [None]
  - DYSGEUSIA [None]
  - FATIGUE [None]
  - SALIVA ALTERED [None]
  - SALIVA DISCOLOURATION [None]
  - VOMITING [None]
  - WEIGHT DECREASED [None]
